FAERS Safety Report 7227016-4 (Version None)
Quarter: 2011Q1

REPORT INFORMATION
  Report Type: 
  Country: None (occurrence: None)
  Receive Date: 20110114
  Receipt Date: 20110111
  Transmission Date: 20110831
  Serious: Yes (Hospitalization)
  Sender: FDA-Public Use
  Company Number: PL-AMGEN-POLCT2010000323

PATIENT
  Sex: Female
  Weight: 61 kg

DRUGS (12)
  1. DENOSUMAB [Suspect]
     Indication: OSTEOPOROSIS
     Dosage: 60 MG, Q6MO
     Route: 058
     Dates: start: 20080913
  2. QUINAPRIL [Concomitant]
     Dosage: 20 MG, UNK
  3. EXACYL [Concomitant]
  4. PARACETAMOL [Concomitant]
  5. KALIPOZ [Concomitant]
  6. ZOMIREN [Concomitant]
     Dosage: 0.5 MG, UNK
  7. POLPRAZOL [Concomitant]
     Dosage: 20 MG, UNK
  8. MADOPAR                            /00349201/ [Concomitant]
     Dosage: 62.5 MG, UNK
  9. METOCLOPRAMID                      /00041901/ [Concomitant]
  10. LORAFEN [Concomitant]
     Dosage: 1 MG, QD
  11. CYCLONAMINE [Concomitant]
  12. SALINE                             /00075401/ [Concomitant]

REACTIONS (1)
  - LUNG NEOPLASM MALIGNANT [None]
